FAERS Safety Report 8417154-2 (Version None)
Quarter: 2012Q2

REPORT INFORMATION
  Report Type: 
  Country: None (occurrence: None)
  Receive Date: 20120606
  Receipt Date: 20120523
  Transmission Date: 20120825
  Serious: Yes (Death, Other)
  Sender: FDA-Public Use
  Company Number: JP-ROCHE-1069553

PATIENT
  Sex: Male
  Weight: 75 kg

DRUGS (4)
  1. AVASTIN [Suspect]
     Indication: LUNG ADENOCARCINOMA METASTATIC
     Route: 041
     Dates: start: 20111129, end: 20120502
  2. LOXOPROFEN [Suspect]
     Indication: CANCER PAIN
     Route: 048
     Dates: start: 20110706, end: 20120509
  3. ALIMTA [Concomitant]
     Indication: LUNG ADENOCARCINOMA METASTATIC
     Route: 041
     Dates: start: 20110101, end: 20120502
  4. CARBOPLATIN [Concomitant]
     Indication: LUNG ADENOCARCINOMA METASTATIC
     Route: 041
     Dates: start: 20110101, end: 20110502

REACTIONS (7)
  - SEPSIS [None]
  - DISSEMINATED INTRAVASCULAR COAGULATION [None]
  - HYPERTENSION [None]
  - PERITONITIS [None]
  - BONE MARROW FAILURE [None]
  - ABSCESS [None]
  - GASTROINTESTINAL PERFORATION [None]
